FAERS Safety Report 16662619 (Version 1)
Quarter: 2019Q3

REPORT INFORMATION
  Report Type: Report from Study
  Country: US (occurrence: US)
  Receive Date: 20190802
  Receipt Date: 20190802
  Transmission Date: 20191004
  Serious: No
  Sender: FDA-Public Use
  Company Number: US-EXELIXIS-CABO-18017694

PATIENT
  Sex: Male

DRUGS (1)
  1. CABOMETYX [Suspect]
     Active Substance: CABOZANTINIB S-MALATE
     Indication: RENAL CANCER
     Dosage: UNK
     Dates: start: 201811

REACTIONS (12)
  - Dyskinesia [Unknown]
  - Blood pressure increased [Unknown]
  - Flatulence [Unknown]
  - Constipation [Unknown]
  - Abdominal distension [Unknown]
  - Erythema [Unknown]
  - Arthritis [Unknown]
  - Peripheral coldness [Recovered/Resolved]
  - Abdominal pain [Unknown]
  - Diarrhoea [Unknown]
  - Decreased appetite [Unknown]
  - Skin irritation [Unknown]

NARRATIVE: CASE EVENT DATE: 2018
